FAERS Safety Report 6608105-1 (Version None)
Quarter: 2010Q1

REPORT INFORMATION
  Report Type: 
  Country: None (occurrence: None)
  Receive Date: 20100226
  Receipt Date: 20100226
  Transmission Date: 20100710
  Serious: No
  Sender: FDA-Public Use
  Company Number: None

PATIENT
  Age: 54 Year
  Sex: Male
  Weight: 102.0593 kg

DRUGS (12)
  1. CLOZAPINE [Suspect]
     Dosage: 675MG DAY PO }30 DAYS
     Route: 048
  2. GEMFIBROZIL [Concomitant]
  3. TRIHEXYPHENIDYL HCL [Concomitant]
  4. DOCUSATE [Concomitant]
  5. INDOMETHACIN [Concomitant]
  6. IBUPROFEN [Concomitant]
  7. LACTULOSE [Concomitant]
  8. METAMUCIL-2 [Concomitant]
  9. LORAZEPAM [Concomitant]
  10. SELSUN BLUE SHAMPOO [Concomitant]
  11. ACETAMINOPHEN [Concomitant]
  12. BENZTROPINE MESYLATE [Concomitant]

REACTIONS (2)
  - BALLISMUS [None]
  - MYOCLONUS [None]
